FAERS Safety Report 21621561 (Version 1)
Quarter: 2022Q4

REPORT INFORMATION
  Report Type: Spontaneous
  Country: ID (occurrence: ID)
  Receive Date: 20221121
  Receipt Date: 20221121
  Transmission Date: 20230113
  Serious: Yes (Other)
  Sender: FDA-Public Use
  Company Number: ID-ANIPHARMA-2022-ID-000015

PATIENT
  Age: 56 Year
  Sex: Female

DRUGS (2)
  1. ANASTROZOLE [Suspect]
     Active Substance: ANASTROZOLE
     Indication: Product used for unknown indication
     Dosage: 1 MG DAILY
     Route: 048
  2. LYNPARZA [Concomitant]
     Active Substance: OLAPARIB
     Route: 065

REACTIONS (11)
  - Chest wall mass [Unknown]
  - Lymphadenopathy [Unknown]
  - Pain [Unknown]
  - Neck mass [Unknown]
  - Oedema [Unknown]
  - Invasive lobular breast carcinoma [Unknown]
  - Pain in extremity [Unknown]
  - Skin hypertrophy [Unknown]
  - Skin lesion [Unknown]
  - Metastases to chest wall [Unknown]
  - Metastases to soft tissue [Unknown]

NARRATIVE: CASE EVENT DATE: 20210301
